FAERS Safety Report 5277819-0 (Version None)
Quarter: 2007Q1

REPORT INFORMATION
  Report Type: 
  Country: None (occurrence: None)
  Receive Date: 20070327
  Receipt Date: 20070317
  Transmission Date: 20070707
  Serious: Yes (Other)
  Sender: FDA-Public Use
  Company Number: US-PFIZER INC-2007008428

PATIENT
  Sex: Female
  Weight: 101.2 kg

DRUGS (7)
  1. PREDNISONE [Suspect]
  2. CHANTIX [Suspect]
     Indication: EX-SMOKER
     Route: 048
     Dates: start: 20070101, end: 20070212
  3. ASPIRIN [Concomitant]
  4. NIASPAN [Concomitant]
  5. CLARITIN [Concomitant]
  6. SIMVASTATIN [Concomitant]
  7. DILTIAZEM [Concomitant]

REACTIONS (9)
  - ASTHENIA [None]
  - CHEST PAIN [None]
  - DIARRHOEA [None]
  - DRY MOUTH [None]
  - INCREASED APPETITE [None]
  - INFLUENZA [None]
  - NAUSEA [None]
  - SOMNOLENCE [None]
  - WEIGHT INCREASED [None]
